FAERS Safety Report 7288935-6 (Version None)
Quarter: 2011Q1

REPORT INFORMATION
  Report Type: 
  Country: None (occurrence: None)
  Receive Date: 20110201
  Receipt Date: 20110106
  Transmission Date: 20110831
  Serious: Yes (Congenital Anomaly)
  Sender: FDA-Public Use
  Company Number: ADR-UNK-013

PATIENT
  Age: 266 Day
  Sex: Female
  Weight: 2.69 kg

DRUGS (4)
  1. EFAVIRENZ [Suspect]
     Indication: ACQUIRED IMMUNODEFICIENCY SYNDROME
     Dosage: 600 MG/DAY; ORAL
     Route: 048
  2. RITONAVIR [Concomitant]
  3. ATAZANAVIR SULFATE [Concomitant]
  4. TENOFOVIR DISOPROXIL FUMARATE AND EMTRICITABINE [Concomitant]

REACTIONS (2)
  - VENTRICULAR SEPTAL DEFECT [None]
  - MATERNAL DRUGS AFFECTING FOETUS [None]
